FAERS Safety Report 6293544-1 (Version None)
Quarter: 2009Q3

REPORT INFORMATION
  Report Type: 
  Country: None (occurrence: None)
  Receive Date: 20090729
  Receipt Date: 20090714
  Transmission Date: 20100115
  Serious: Yes (Life-Threatening, Hospitalization, Other)
  Sender: FDA-Public Use
  Company Number: JPI-P-006399

PATIENT
  Age: 32 Year
  Sex: Female

DRUGS (3)
  1. LUVOX [Suspect]
     Indication: DEPRESSION
     Dosage: 25 MG (25 MG, 1 IN 1 D), ORAL; 25 MG (25 MG, 2 IN 1 D), ORAL; 25 MG, 1 D, ORAL
     Route: 048
     Dates: start: 20080425, end: 20080519
  2. LUVOX [Suspect]
     Indication: DEPRESSION
     Dosage: 25 MG (25 MG, 1 IN 1 D), ORAL; 25 MG (25 MG, 2 IN 1 D), ORAL; 25 MG, 1 D, ORAL
     Route: 048
     Dates: start: 20080520, end: 20081013
  3. LUVOX [Suspect]
     Indication: DEPRESSION
     Dosage: 25 MG (25 MG, 1 IN 1 D), ORAL; 25 MG (25 MG, 2 IN 1 D), ORAL; 25 MG, 1 D, ORAL
     Route: 048
     Dates: start: 20081014, end: 20081021

REACTIONS (3)
  - CAESAREAN SECTION [None]
  - DRUG EXPOSURE DURING PREGNANCY [None]
  - PREMATURE RUPTURE OF MEMBRANES [None]
